FAERS Safety Report 25679945 (Version 1)
Quarter: 2025Q3

REPORT INFORMATION
  Report Type: Spontaneous
  Country: US (occurrence: US)
  Receive Date: 20250814
  Receipt Date: 20250814
  Transmission Date: 20251020
  Serious: No
  Sender: RANBAXY
  Company Number: US-MIMS-SUN-2025-USA-54530

PATIENT
  Sex: Female
  Weight: 58.957 kg

DRUGS (1)
  1. TRAMADOL [Suspect]
     Active Substance: TRAMADOL
     Indication: Rheumatoid arthritis
     Dosage: 50 MILLIGRAM, TID
     Route: 065

REACTIONS (3)
  - Therapy interrupted [Unknown]
  - Wrong technique in product usage process [Unknown]
  - Feeling abnormal [Unknown]
